FAERS Safety Report 7799156-2 (Version None)
Quarter: 2011Q4

REPORT INFORMATION
  Report Type: 
  Country: None (occurrence: None)
  Receive Date: 20111006
  Receipt Date: 20111004
  Transmission Date: 20120403
  Serious: Yes (Death)
  Sender: FDA-Public Use
  Company Number: CO-PFIZER INC-2011237877

PATIENT
  Age: 65 Year
  Sex: Female

DRUGS (1)
  1. NORVASC [Suspect]
     Dosage: 5 MG, UNK
     Route: 048
     Dates: start: 20050510

REACTIONS (1)
  - DEATH [None]
